FAERS Safety Report 22074919 (Version 4)
Quarter: 2023Q2

REPORT INFORMATION
  Report Type: Spontaneous
  Country: US (occurrence: US)
  Receive Date: 20230308
  Receipt Date: 20230406
  Transmission Date: 20230722
  Serious: No
  Sender: FDA-Public Use
  Company Number: US-SANOFI-01515234

PATIENT
  Age: 79 Year
  Sex: Female

DRUGS (2)
  1. LANTUS SOLOSTAR [Suspect]
     Active Substance: INSULIN GLARGINE
     Indication: Type 2 diabetes mellitus
     Dosage: 50 U, QD
  2. WARFARIN [Suspect]
     Active Substance: WARFARIN
     Dosage: UNKNOWN

REACTIONS (2)
  - Skin discolouration [Not Recovered/Not Resolved]
  - Injection site bruising [Unknown]
